FAERS Safety Report 7221527-3 (Version None)
Quarter: 2011Q1

REPORT INFORMATION
  Report Type: 
  Country: None (occurrence: None)
  Receive Date: 20110112
  Receipt Date: 20110103
  Transmission Date: 20110831
  Serious: Yes (Death, Other)
  Sender: FDA-Public Use
  Company Number: BR-SANOFI-AVENTIS-2011SA000557

PATIENT
  Age: 75 Year
  Sex: Male

DRUGS (3)
  1. HYDRALAZINE HCL [Concomitant]
     Indication: HYPERTENSION
     Route: 048
  2. OPTIPEN [Suspect]
     Dates: end: 20070101
  3. LANTUS [Suspect]
     Route: 058
     Dates: start: 20000101, end: 20070501

REACTIONS (1)
  - LEUKAEMIA [None]
